FAERS Safety Report 25449412 (Version 1)
Quarter: 2025Q2

REPORT INFORMATION
  Report Type: Report from Study
  Country: US (occurrence: US)
  Receive Date: 20250618
  Receipt Date: 20250618
  Transmission Date: 20250716
  Serious: Yes (Hospitalization)
  Sender: UCB
  Company Number: US-UCBSA-2025027847

PATIENT
  Age: 73 Year
  Sex: Male

DRUGS (1)
  1. BIMEKIZUMAB [Suspect]
     Active Substance: BIMEKIZUMAB
     Indication: Psoriasis
     Dosage: 320 MILLIGRAM, EV 4 WEEKS AT WEEKS 0, 4, 8, 12, AND 16, THEN EVERY 8 WEEKS THEREAFTER
     Route: 058
     Dates: start: 20250312

REACTIONS (13)
  - Transient ischaemic attack [Recovering/Resolving]
  - Carotid artery dissection [Recovering/Resolving]
  - Hyperlipidaemia [Recovering/Resolving]
  - Paraesthesia [Recovering/Resolving]
  - Hypertension [Recovering/Resolving]
  - Tongue coated [Not Recovered/Not Resolved]
  - Hypoaesthesia oral [Not Recovered/Not Resolved]
  - Paraesthesia oral [Not Recovered/Not Resolved]
  - Dry mouth [Not Recovered/Not Resolved]
  - Arthralgia [Not Recovered/Not Resolved]
  - Influenza like illness [Not Recovered/Not Resolved]
  - Fatigue [Not Recovered/Not Resolved]
  - Oropharyngeal pain [Not Recovered/Not Resolved]

NARRATIVE: CASE EVENT DATE: 20250401
